FAERS Safety Report 4728050-6 (Version None)
Quarter: 2005Q3

REPORT INFORMATION
  Report Type: 
  Country: None (occurrence: None)
  Receive Date: 20050721
  Receipt Date: 20050527
  Transmission Date: 20060218
  Serious: No
  Sender: FDA-Public Use
  Company Number: 2005SP001076

PATIENT
  Age: 41 Year
  Sex: Female
  Weight: 61.6892 kg

DRUGS (1)
  1. LUNESTA [Suspect]
     Dosage: 2 MG;HS;ORAL
     Route: 048
     Dates: start: 20050501

REACTIONS (4)
  - ABNORMAL BEHAVIOUR [None]
  - DISORIENTATION [None]
  - HALLUCINATION [None]
  - SOMNOLENCE [None]
